FAERS Safety Report 8600566-1 (Version None)
Quarter: 2012Q3

REPORT INFORMATION
  Report Type: 
  Country: None (occurrence: None)
  Receive Date: 20120803
  Receipt Date: 20120718
  Transmission Date: 20120928
  Serious: Yes (Other)
  Sender: FDA-Public Use
  Company Number: TCI2012A03917

PATIENT
  Age: 12 Year
  Sex: 0

DRUGS (3)
  1. LANSOPRAZOLE [Suspect]
     Indication: PROPHYLAXIS AGAINST GASTROINTESTINAL ULCER
     Dosage: 15 MG (15 MG, 1 IN 1 D) PER ORAL
     Route: 048
  2. ASPIRIN [Concomitant]
  3. CORTICOSTEROIDS [Concomitant]

REACTIONS (1)
  - GASTRIC PERFORATION [None]
